FAERS Safety Report 5787972-8 (Version None)
Quarter: 2008Q2

REPORT INFORMATION
  Report Type: 
  Country: None (occurrence: None)
  Receive Date: 20080625
  Receipt Date: 20080616
  Transmission Date: 20081010
  Serious: Yes (Death, Other)
  Sender: FDA-Public Use
  Company Number: US-JNJFOC-20080103186

PATIENT
  Sex: Male

DRUGS (7)
  1. REMICADE [Suspect]
     Indication: ANKYLOSING SPONDYLITIS
     Route: 042
  2. ASACOL [Concomitant]
     Route: 048
  3. GLUCOSAMINE [Concomitant]
  4. SERTRALINE [Concomitant]
  5. TIMOPTIC [Concomitant]
  6. ASPIRIN [Concomitant]
  7. FENTANYL-100 [Concomitant]

REACTIONS (3)
  - ACUTE LEUKAEMIA [None]
  - PANCYTOPENIA [None]
  - SEPSIS [None]
